FAERS Safety Report 21230964 (Version 2)
Quarter: 2022Q3

REPORT INFORMATION
  Report Type: Report from Study
  Country: CA (occurrence: CA)
  Receive Date: 20220819
  Receipt Date: 20220902
  Transmission Date: 20221026
  Serious: Yes (Other)
  Sender: FDA-Public Use
  Company Number: CA-ABBVIE-22K-028-4508730-00

PATIENT
  Age: 36 Year
  Sex: Female

DRUGS (1)
  1. HUMIRA [Suspect]
     Active Substance: ADALIMUMAB
     Indication: Crohn^s disease
     Route: 058
     Dates: start: 20120810

REACTIONS (8)
  - Anal fistula [Not Recovered/Not Resolved]
  - Intestinal resection [Unknown]
  - Anal abscess [Unknown]
  - Constipation [Unknown]
  - Infrequent bowel movements [Unknown]
  - Incision site complication [Unknown]
  - Pain [Not Recovered/Not Resolved]
  - COVID-19 [Unknown]

NARRATIVE: CASE EVENT DATE: 20220301
